FAERS Safety Report 24538896 (Version 2)
Quarter: 2025Q1

REPORT INFORMATION
  Report Type: Other
  Country: CA (occurrence: CA)
  Receive Date: 20241023
  Receipt Date: 20250123
  Transmission Date: 20250409
  Serious: Yes (Other)
  Sender: TOLMAR
  Company Number: CA-TOLMAR, INC.-24CA053256

PATIENT
  Sex: Male

DRUGS (5)
  1. ELIGARD [Suspect]
     Active Substance: LEUPROLIDE ACETATE
     Indication: Prostate cancer
     Dosage: 22.5 MILLIGRAM, Q 3 MONTH
     Route: 058
     Dates: start: 20240718
  2. ELIGARD [Suspect]
     Active Substance: LEUPROLIDE ACETATE
     Dosage: 22.5 MILLIGRAM, Q 3 MONTH
     Route: 058
     Dates: start: 20241009
  3. ELIGARD [Suspect]
     Active Substance: LEUPROLIDE ACETATE
     Dosage: 22.5 MILLIGRAM, Q 3 MONTH
     Route: 058
     Dates: start: 20250103
  4. ELIGARD [Suspect]
     Active Substance: LEUPROLIDE ACETATE
     Indication: Prostate cancer
  5. APALUTAMIDE [Concomitant]
     Active Substance: APALUTAMIDE
     Indication: Product used for unknown indication
     Dates: start: 20241007

REACTIONS (6)
  - Hypothyroidism [Unknown]
  - Brain fog [Unknown]
  - Feeling cold [Unknown]
  - Hot flush [Unknown]
  - Night sweats [Unknown]
  - Asthenia [Unknown]
